FAERS Safety Report 9819687 (Version 2)
Quarter: 2014Q1

REPORT INFORMATION
  Report Type: Report from Study
  Country: ZA (occurrence: ZA)
  Receive Date: 20140115
  Receipt Date: 20140324
  Transmission Date: 20141002
  Serious: Yes (Death, Hospitalization)
  Sender: FDA-Public Use
  Company Number: PHHY2014ZA004272

PATIENT
  Age: 72 Year
  Sex: Female
  Weight: 56.8 kg

DRUGS (7)
  1. GLIVEC [Suspect]
     Indication: GASTROINTESTINAL STROMAL TUMOUR
     Dosage: 400 MG, UNK
     Route: 048
     Dates: start: 20130219
  2. CLOPIDOGREL [Concomitant]
     Dosage: 25 MG, DAY
  3. SIMVASTATIN [Concomitant]
     Indication: HYPERCHOLESTEROLAEMIA
     Dosage: 40 MG, DAILY
  4. OMEPRAZOLE [Concomitant]
     Dosage: 20 MG, DAILY
  5. ASPIRIN [Concomitant]
     Dosage: 50 MG, DAILY
  6. LASIX [Concomitant]
     Indication: HYPERTENSION
     Dosage: 40 MG, DAILY
  7. LASIX [Concomitant]
     Dosage: UNK UKN, UNK

REACTIONS (5)
  - Bradycardia [Fatal]
  - Acute myocardial infarction [Unknown]
  - Cardiac failure [Unknown]
  - Pleural effusion [Unknown]
  - Dyspnoea [Unknown]
